FAERS Safety Report 24034491 (Version 1)
Quarter: 2024Q3

REPORT INFORMATION
  Report Type: Spontaneous
  Country: US (occurrence: US)
  Receive Date: 20240701
  Receipt Date: 20240701
  Transmission Date: 20241017
  Serious: Yes (Life-Threatening)
  Sender: PFIZER
  Company Number: US-PFIZER INC-PV202400083878

PATIENT
  Age: 61 Year
  Sex: Female

DRUGS (7)
  1. BUPIVACAINE HYDROCHLORIDE [Suspect]
     Active Substance: BUPIVACAINE HYDROCHLORIDE\BUPIVACAINE HYDROCHLORIDE ANHYDROUS
     Indication: Induction of anaesthesia
     Dosage: 10 ML
  2. MEPIVACAINE HYDROCHLORIDE [Suspect]
     Active Substance: MEPIVACAINE HYDROCHLORIDE
     Indication: Induction of anaesthesia
     Dosage: 10 ML
  3. HYALURONIDASE [Suspect]
     Active Substance: HYALURONIDASE
     Indication: Induction of anaesthesia
     Dosage: UNK (150 UNIT)
  4. DIGOXIN [Concomitant]
     Active Substance: DIGOXIN
     Dosage: 0.25 MG (EVERY OTHER DAY)
  5. METHYLDOPA [Concomitant]
     Active Substance: METHYLDOPA
     Dosage: 250 MG, 2X/DAY
  6. FUROSEMIDE [Concomitant]
     Active Substance: FUROSEMIDE
     Dosage: 120 MG, 3X/DAY
  7. ISOPHANE INSULIN [Concomitant]
     Active Substance: INSULIN NOS
     Dosage: 7 UNIT, EACH MORNING

REACTIONS (5)
  - Accidental exposure to product [Recovered/Resolved]
  - Toxicity to various agents [Recovered/Resolved]
  - Cardio-respiratory arrest [Recovered/Resolved]
  - Nervous system disorder [Recovered/Resolved]
  - Hypertension [Recovered/Resolved]
